FAERS Safety Report 6884970-8 (Version None)
Quarter: 2010Q3

REPORT INFORMATION
  Report Type: 
  Country: None (occurrence: None)
  Receive Date: 20100727
  Receipt Date: 20100715
  Transmission Date: 20110219
  Serious: Yes (Other)
  Sender: FDA-Public Use
  Company Number: 2010US002782

PATIENT

DRUGS (1)
  1. PROGRAF [Suspect]
     Indication: LIVER TRANSPLANT

REACTIONS (2)
  - HEPATIC CIRRHOSIS [None]
  - HEPATITIS CHOLESTATIC [None]
